FAERS Safety Report 4579908-2 (Version None)
Quarter: 2005Q1

REPORT INFORMATION
  Report Type: 
  Country: None (occurrence: None)
  Receive Date: 20050210
  Receipt Date: 20050125
  Transmission Date: 20050727
  Serious: Yes (Hospitalization)
  Sender: FDA-Public Use
  Company Number: MC200500095

PATIENT
  Sex: Male

DRUGS (2)
  1. ANGIOMAX [Suspect]
     Indication: STENT PLACEMENT
     Dosage: SEE IMAGE
  2. PLAVIX [Concomitant]

REACTIONS (4)
  - CEREBROVASCULAR ACCIDENT [None]
  - MUSCLE RIGIDITY [None]
  - PROCEDURAL COMPLICATION [None]
  - SPEECH DISORDER [None]
